FAERS Safety Report 6853790-2 (Version None)
Quarter: 2010Q3

REPORT INFORMATION
  Report Type: 
  Country: None (occurrence: None)
  Receive Date: 20100717
  Receipt Date: 20071217
  Transmission Date: 20110219
  Serious: No
  Sender: FDA-Public Use
  Company Number: US-PFIZER INC-2007106670

PATIENT
  Sex: Male
  Weight: 100 kg

DRUGS (10)
  1. CHANTIX [Suspect]
     Indication: SMOKING CESSATION THERAPY
     Dates: start: 20071101
  2. NEURONTIN [Concomitant]
     Route: 048
  3. GEMFIBROZIL [Concomitant]
     Route: 048
  4. METOPROLOL [Concomitant]
     Route: 048
  5. TOPAMAX [Concomitant]
     Route: 048
  6. LIPITOR [Concomitant]
     Route: 048
  7. AMITRIPTYLINE HYDROCHLORIDE [Concomitant]
     Route: 048
  8. OMEPRAZOLE [Concomitant]
     Route: 048
  9. ACETYLSALICYLIC ACID [Concomitant]
     Route: 048
  10. MULTI-VITAMINS [Concomitant]
     Route: 048

REACTIONS (1)
  - MYALGIA [None]
